FAERS Safety Report 26145425 (Version 1)
Quarter: 2025Q4

REPORT INFORMATION
  Report Type: Spontaneous
  Country: US (occurrence: None)
  Receive Date: 20251210
  Receipt Date: 20251210
  Transmission Date: 20260119
  Serious: Yes (Other)
  Sender: FDA-CTU
  Company Number: None

PATIENT
  Age: 71 Year
  Sex: Female
  Weight: 77.1 kg

DRUGS (1)
  1. NEMOLIZUMAB [Suspect]
     Active Substance: NEMOLIZUMAB
     Indication: Dermatitis atopic
     Dosage: 30 MG EVERY 4 WEEKS SUBCUTANEOUS
     Route: 058
     Dates: start: 20251031

REACTIONS (5)
  - Rash [None]
  - Headache [None]
  - Rash papular [None]
  - Rash macular [None]
  - Therapy interrupted [None]

NARRATIVE: CASE EVENT DATE: 20251101
